FAERS Safety Report 11678421 (Version 3)
Quarter: 2015Q4

REPORT INFORMATION
  Report Type: Spontaneous
  Country: IR (occurrence: IR)
  Receive Date: 20151028
  Receipt Date: 20151216
  Transmission Date: 20160304
  Serious: Yes (Other)
  Sender: FDA-Public Use
  Company Number: IR-PFIZER INC-2015359872

PATIENT
  Age: 52 Year
  Sex: Male

DRUGS (6)
  1. CAPECITABINE. [Concomitant]
     Active Substance: CAPECITABINE
     Dosage: 1000 MG/M, 2X/DAY, ON DAY 1-14 EVERY 3 WEEKS FOR NEARLY 8 MONTHS
     Route: 048
  2. XELODA [Concomitant]
     Active Substance: CAPECITABINE
     Indication: COLON CANCER
     Dosage: UNK
  3. OXALIPLATIN. [Suspect]
     Active Substance: OXALIPLATIN
     Indication: COLON CANCER
     Dosage: 130 MG/M, TWICE A DAY (DAY 1), EVERY 3 WEEKS
     Route: 042
  4. BEVACIZUMAB [Concomitant]
     Active Substance: BEVACIZUMAB
     Indication: COLON CANCER
     Dosage: 7.5 MG/KG ON DAY 1 EVERY 3 WEEKS FOR NEARLY 8 MONTHS
     Route: 042
  5. IRINOTECAN HCL [Suspect]
     Active Substance: IRINOTECAN HYDROCHLORIDE
     Indication: COLON CANCER
     Dosage: UNK
  6. CAPECITABINE. [Concomitant]
     Active Substance: CAPECITABINE
     Indication: COLON CANCER
     Dosage: 1000 MG/M TWICE DAILY, CYCLIC
     Route: 048

REACTIONS (2)
  - Chronic myeloid leukaemia [Recovering/Resolving]
  - Second primary malignancy [Recovering/Resolving]
